FAERS Safety Report 15881356 (Version 3)
Quarter: 2019Q1

REPORT INFORMATION
  Report Type: Not Available
  Country: US (occurrence: US)
  Receive Date: 20190128
  Receipt Date: 20190220
  Transmission Date: 20190417
  Serious: Yes (Death, Hospitalization, Other)
  Sender: FDA-Public Use
  Company Number: US-NEUROCRINE BIOSCIENCES INC.-2019NBI00259

PATIENT
  Age: 72 Year
  Sex: Female

DRUGS (5)
  1. LEXAPRO [Concomitant]
     Active Substance: ESCITALOPRAM OXALATE
     Indication: DEPRESSION
  2. LAMICTAL [Concomitant]
     Active Substance: LAMOTRIGINE
     Indication: BIPOLAR DISORDER
  3. INGREZZA [Suspect]
     Active Substance: VALBENAZINE
     Indication: TARDIVE DYSKINESIA
     Route: 048
     Dates: start: 20180321, end: 20180328
  4. AMBIEN [Concomitant]
     Active Substance: ZOLPIDEM TARTRATE
  5. INGREZZA [Suspect]
     Active Substance: VALBENAZINE
     Route: 048
     Dates: start: 20180329, end: 20190119

REACTIONS (10)
  - Fall [Unknown]
  - Cerebrovascular accident [Fatal]
  - Femur fracture [Unknown]
  - Fall [Unknown]
  - Cardiac failure congestive [Unknown]
  - Hip fracture [Unknown]
  - Aortic stenosis [Unknown]
  - Chronic obstructive pulmonary disease [Unknown]
  - Pulmonary hypertension [Unknown]
  - Mitral valve incompetence [Unknown]

NARRATIVE: CASE EVENT DATE: 201809
